FAERS Safety Report 6876578-5 (Version None)
Quarter: 2010Q3

REPORT INFORMATION
  Report Type: 
  Country: None (occurrence: None)
  Receive Date: 20100723
  Receipt Date: 20100716
  Transmission Date: 20110219
  Serious: Yes (Other)
  Sender: FDA-Public Use
  Company Number: DSA_42018_2009

PATIENT
  Sex: Female

DRUGS (2)
  1. XENADRINE (25 MG, 87.5 MG) (NOT SPECIFIED) [Suspect]
     Indication: DYSTONIA
     Dosage: SEE IMAGE
     Route: 048
     Dates: start: 20091022
  2. XENADRINE (25 MG, 87.5 MG) (NOT SPECIFIED) [Suspect]
     Indication: HUNTINGTON'S DISEASE
     Dosage: SEE IMAGE
     Route: 048
     Dates: start: 20091022

REACTIONS (7)
  - COGNITIVE DISORDER [None]
  - CONFUSIONAL STATE [None]
  - DELIRIUM [None]
  - DEPRESSION [None]
  - GAIT DISTURBANCE [None]
  - MOOD SWINGS [None]
  - NAUSEA [None]
